FAERS Safety Report 6376457-6 (Version None)
Quarter: 2009Q3

REPORT INFORMATION
  Report Type: 
  Country: None (occurrence: None)
  Receive Date: 20090921
  Receipt Date: 20090915
  Transmission Date: 20100115
  Serious: Yes (Other)
  Sender: FDA-Public Use
  Company Number: 380647

PATIENT
  Age: 57 Year
  Sex: Female

DRUGS (8)
  1. VANCOMYCIN [Suspect]
     Indication: LIVER ABSCESS
  2. VANCOMYCIN [Suspect]
     Indication: SPLENIC ABSCESS
  3. PHENYTOIN [Suspect]
     Indication: CONVULSION
  4. (FRUSEMIDE /00032601/) [Suspect]
     Indication: DRUG USE FOR UNKNOWN INDICATION
  5. AMIODARONE HCL [Suspect]
     Indication: DRUG USE FOR UNKNOWN INDICATION
  6. CIPROFLOXACIN HYDROCHLORIDE [Concomitant]
  7. METRONIDAZOLE [Concomitant]
  8. (AMPPHOTERICIN) [Concomitant]

REACTIONS (1)
  - TOXIC EPIDERMAL NECROLYSIS [None]
